FAERS Safety Report 8767079 (Version 1)
Quarter: 2012Q4

REPORT INFORMATION
  Report Type: 
  Country: US (occurrence: US)
  Receive Date: 20120830
  Receipt Date: 20120830
  Transmission Date: 20130627
  Serious: Yes (Other)
  Sender: FDA-Public Use
  Company Number: US-ELI_LILLY_AND_COMPANY-US201208007679

PATIENT
  Age: 58 Year
  Sex: Female

DRUGS (3)
  1. CYMBALTA [Suspect]
     Indication: BACK PAIN
     Dosage: UNK
  2. PRILOSEC [Concomitant]
  3. XANAX [Concomitant]

REACTIONS (14)
  - Hepatic cyst [Unknown]
  - Hepatic pain [Unknown]
  - Abdominal pain [Unknown]
  - Hepatic enzyme increased [Unknown]
  - Liver disorder [Unknown]
  - Road traffic accident [Unknown]
  - Asthenia [Unknown]
  - Weight increased [Unknown]
  - Joint injury [Unknown]
  - Joint swelling [Unknown]
  - Oedema peripheral [Unknown]
  - Crying [Unknown]
  - Thyroid disorder [Unknown]
  - Accident at work [Unknown]
